FAERS Safety Report 17980676 (Version 4)
Quarter: 2022Q1

REPORT INFORMATION
  Report Type: Spontaneous
  Country: CA (occurrence: CA)
  Receive Date: 20200704
  Receipt Date: 20220112
  Transmission Date: 20220423
  Serious: Yes (Life-Threatening, Other)
  Sender: FDA-Public Use
  Company Number: CA-MLMSERVICE-20200619-2346791-3

PATIENT
  Age: 58 Year
  Sex: Female

DRUGS (4)
  1. METHOTREXATE [Suspect]
     Active Substance: METHOTREXATE
     Indication: Dermatomyositis
     Dosage: 1 EVERY 1 WEEKS
     Route: 048
  2. PREDNISONE [Suspect]
     Active Substance: PREDNISONE
     Indication: Systemic scleroderma
  3. LIDOCAINE [Suspect]
     Active Substance: LIDOCAINE
     Indication: Tenosynovitis
     Route: 061
  4. TRIAMCINOLONE [Suspect]
     Active Substance: TRIAMCINOLONE
     Indication: Tenosynovitis

REACTIONS (6)
  - Condition aggravated [Recovering/Resolving]
  - Tenosynovitis [Recovering/Resolving]
  - Mycobacterial infection [Recovering/Resolving]
  - Myositis [Unknown]
  - Rebound effect [Unknown]
  - Off label use [Unknown]

NARRATIVE: CASE EVENT DATE: 20171101
